FAERS Safety Report 5591027-5 (Version None)
Quarter: 2008Q1

REPORT INFORMATION
  Report Type: 
  Country: None (occurrence: None)
  Receive Date: 20080111
  Receipt Date: 20080111
  Transmission Date: 20080703
  Serious: Yes (Other)
  Sender: FDA-Public Use
  Company Number: None

PATIENT
  Age: 50 Year
  Sex: Female
  Weight: 67.1324 kg

DRUGS (5)
  1. CHANTIX [Suspect]
     Indication: SMOKING CESSATION THERAPY
     Dosage: 1MG  B.I.D.  PO
     Route: 048
     Dates: start: 20070716, end: 20071019
  2. LEVOTHYROXINE SODIUM [Concomitant]
  3. PREMARIN [Concomitant]
  4. LEXAPRO [Concomitant]
  5. OXAZEPAM [Concomitant]

REACTIONS (3)
  - AFFECT LABILITY [None]
  - DEPRESSION [None]
  - SUICIDAL IDEATION [None]
